FAERS Safety Report 22189703 (Version 4)
Quarter: 2023Q2

REPORT INFORMATION
  Report Type: Report from Study
  Country: US (occurrence: US)
  Receive Date: 20230410
  Receipt Date: 20230602
  Transmission Date: 20230722
  Serious: Yes (Other)
  Sender: FDA-Public Use
  Company Number: US-DECIPHERA PHARMACEUTICALS LLC-2023US000292

PATIENT
  Sex: Female

DRUGS (3)
  1. QINLOCK [Suspect]
     Active Substance: RIPRETINIB
     Indication: Gastrointestinal stromal tumour
     Dosage: 100 MILLIGRAM, QD
     Route: 048
     Dates: start: 20230331
  2. NEXAVAR [Concomitant]
     Active Substance: SORAFENIB
     Indication: Product used for unknown indication
  3. STIVARGA [Concomitant]
     Active Substance: REGORAFENIB
     Indication: Product used for unknown indication

REACTIONS (20)
  - Metastases to liver [Unknown]
  - Skin exfoliation [Recovering/Resolving]
  - Skin fissures [Recovering/Resolving]
  - Neoplasm progression [Unknown]
  - Gait disturbance [Unknown]
  - Peripheral swelling [Unknown]
  - Tumour pain [Unknown]
  - Hypotension [Unknown]
  - Blood albumin increased [Not Recovered/Not Resolved]
  - Drug intolerance [Unknown]
  - Muscle atrophy [Unknown]
  - Blood alkaline phosphatase increased [Not Recovered/Not Resolved]
  - Asthenia [Unknown]
  - Decreased appetite [Unknown]
  - Abdominal pain [Unknown]
  - Alopecia [Not Recovered/Not Resolved]
  - Fatigue [Not Recovered/Not Resolved]
  - Constipation [Unknown]
  - Weight decreased [Unknown]
  - Underdose [Unknown]
